FAERS Safety Report 18796032 (Version 1)
Quarter: 2021Q1

REPORT INFORMATION
  Report Type: Spontaneous
  Country: US (occurrence: US)
  Receive Date: 20210127
  Receipt Date: 20210127
  Transmission Date: 20210419
  Serious: No
  Sender: FDA-Public Use
  Company Number: US-009507513-2101USA007862

PATIENT
  Sex: Male

DRUGS (3)
  1. KEYTRUDA [Suspect]
     Active Substance: PEMBROLIZUMAB
     Dosage: 200 MILLIGRAM, Q3W
     Dates: start: 201910
  2. INLYTA [Suspect]
     Active Substance: AXITINIB
     Dosage: 500 MILLIGRAM, QD
  3. INLYTA [Suspect]
     Active Substance: AXITINIB
     Dosage: 500 MILLIGRAM, BID
     Dates: start: 201910

REACTIONS (2)
  - Weight decreased [Unknown]
  - Ageusia [Unknown]

NARRATIVE: CASE EVENT DATE: 202001
